FAERS Safety Report 7359656-6 (Version None)
Quarter: 2011Q1

REPORT INFORMATION
  Report Type: 
  Country: None (occurrence: None)
  Receive Date: 20110317
  Receipt Date: 20100626
  Transmission Date: 20110831
  Serious: No
  Sender: FDA-Public Use
  Company Number: US-PFIZER INC-2010079739

PATIENT
  Sex: Female
  Weight: 89.796 kg

DRUGS (6)
  1. HYZAAR [Suspect]
     Indication: HYPERTENSION
     Dosage: 100 MG, 1X/DAY
     Route: 048
  2. VITAMIN D [Concomitant]
     Indication: VITAMIN SUPPLEMENTATION
     Dosage: 600 MG, 1X/DAY
  3. NORVASC [Suspect]
     Indication: HYPERTENSION
     Dosage: 10 MG, 1X/DAY
     Route: 048
     Dates: start: 20100301
  4. ACETYLSALICYLIC ACID [Concomitant]
     Indication: CARDIAC DISORDER
     Dosage: 81 MG, 1X/DAY
  5. ZETIA [Suspect]
     Indication: BLOOD CHOLESTEROL ABNORMAL
     Dosage: 10 MG, 1X/DAY
     Route: 048
     Dates: start: 20100601
  6. PLAVIX [Suspect]
     Indication: ANTIPLATELET THERAPY
     Dosage: 10 MG, 1X/DAY
     Route: 048

REACTIONS (4)
  - BLOOD PRESSURE DECREASED [None]
  - WEIGHT DECREASED [None]
  - VERTIGO [None]
  - HEPATIC ENZYME INCREASED [None]
